FAERS Safety Report 21002655 (Version 1)
Quarter: 2022Q2

REPORT INFORMATION
  Report Type: Spontaneous
  Country: US (occurrence: US)
  Receive Date: 20220624
  Receipt Date: 20220624
  Transmission Date: 20220720
  Serious: No
  Sender: FDA-Public Use
  Company Number: US-BioHaven Pharmaceuticals-2022BHV001400

PATIENT
  Age: 56 Year
  Sex: Male
  Weight: 113.50 kg

DRUGS (2)
  1. NURTEC ODT [Suspect]
     Active Substance: RIMEGEPANT SULFATE
     Indication: Migraine prophylaxis
     Dosage: DISSOLVE THE TABLET UNDER THE TONGUE
     Route: 060
     Dates: start: 202111, end: 202204
  2. OZEMPIC [Concomitant]
     Active Substance: SEMAGLUTIDE
     Indication: Product used for unknown indication
     Dosage: SHOTS
     Route: 065

REACTIONS (4)
  - Malaise [Recovered/Resolved]
  - Drug interaction [Recovered/Resolved]
  - Product solubility abnormal [Recovered/Resolved]
  - Dyspepsia [Recovered/Resolved]
